FAERS Safety Report 17411083 (Version 1)
Quarter: 2020Q1

REPORT INFORMATION
  Report Type: Spontaneous
  Country: US (occurrence: US)
  Receive Date: 20200128
  Receipt Date: 20200128
  Transmission Date: 20200409
  Serious: Yes (Other)
  Sender: FDA-Public Use
  Company Number: None

PATIENT
  Age: 53 Year
  Sex: Female
  Weight: 110.22 kg

DRUGS (2)
  1. GENERIC ESTRADIOL ORAL [Suspect]
     Active Substance: ESTRADIOL
     Route: 061
  2. ESTRADIOL TRANSDERMAL SYSTEM [Suspect]
     Active Substance: ESTRADIOL
     Dosage: ?          OTHER ROUTE:PATCHES?

REACTIONS (1)
  - Malaise [None]
